FAERS Safety Report 17587176 (Version 1)
Quarter: 2020Q1

REPORT INFORMATION
  Report Type: Spontaneous
  Country: US (occurrence: US)
  Receive Date: 20200326
  Receipt Date: 20200326
  Transmission Date: 20200409
  Serious: Yes (Death)
  Sender: FDA-Public Use
  Company Number: US-ASTRAZENECA-2020SE42572

PATIENT
  Sex: Male
  Weight: 7.5 kg

DRUGS (1)
  1. SYNAGIS [Suspect]
     Active Substance: PALIVIZUMAB
     Indication: PROPHYLAXIS
     Dosage: 15.0MG/KG UNKNOWN
     Route: 030
     Dates: start: 20191122, end: 20200316

REACTIONS (1)
  - Death [Fatal]
